FAERS Safety Report 4621454-1 (Version None)
Quarter: 2005Q1

REPORT INFORMATION
  Report Type: 
  Country: None (occurrence: None)
  Receive Date: 20050317
  Receipt Date: 20050110
  Transmission Date: 20050727
  Serious: Yes (Other)
  Sender: FDA-Public Use
  Company Number: PHEH2005US00780

PATIENT
  Age: 52 Year
  Sex: Female

DRUGS (2)
  1. TRILEPTAL [Suspect]
     Indication: CONVULSION
     Dosage: 900 MG, BID; ORAL
     Route: 048
     Dates: start: 20040811, end: 20041026
  2. ATORVASTATIN CALCIUM [Concomitant]

REACTIONS (3)
  - FATIGUE [None]
  - LEUKOPENIA [None]
  - NEUTROPENIA [None]
